FAERS Safety Report 8102725-3 (Version None)
Quarter: 2012Q1

REPORT INFORMATION
  Report Type: 
  Country: None (occurrence: None)
  Receive Date: 20120201
  Receipt Date: 20120123
  Transmission Date: 20120608
  Serious: Yes (Hospitalization)
  Sender: FDA-Public Use
  Company Number: MX-BRISTOL-MYERS SQUIBB COMPANY-16366973

PATIENT
  Age: 79 Year
  Sex: Female
  Weight: 70 kg

DRUGS (2)
  1. IRBESARTAN [Suspect]
     Indication: HYPERTENSION
     Dosage: 2007-2010:APROVEL 150MGTABS 150MG/24H 2010-9JAN12:APROVAL TABS300MG/24H 19JAN2012:HALF TAB PER 24H
     Route: 048
     Dates: start: 20100101
  2. GARAMYCIN [Concomitant]
     Dosage: INJ
     Route: 030

REACTIONS (1)
  - DEHYDRATION [None]
